FAERS Safety Report 6551826-X (Version None)
Quarter: 2010Q1

REPORT INFORMATION
  Report Type: 
  Country: None (occurrence: None)
  Receive Date: 20100126
  Receipt Date: 20100118
  Transmission Date: 20100710
  Serious: Yes (Life-Threatening, Hospitalization)
  Sender: FDA-Public Use
  Company Number: GXKR2010BE00879

PATIENT
  Age: 48 Year
  Sex: Female

DRUGS (2)
  1. TRAZODONE (NGX) [Suspect]
     Indication: DEPRESSION
     Dosage: 200 MG/DAY
     Route: 065
  2. VENLAFAXINE [Suspect]
     Indication: DEPRESSION
     Dosage: 75 MG/DAY
     Route: 065

REACTIONS (6)
  - ENCEPHALOPATHY [None]
  - ENDOTRACHEAL INTUBATION [None]
  - HEPATIC FAILURE [None]
  - HEPATITIS ACUTE [None]
  - JAUNDICE [None]
  - LIVER TRANSPLANT [None]
